FAERS Safety Report 10945888 (Version 2)
Quarter: 2015Q1

REPORT INFORMATION
  Report Type: Spontaneous
  Country: TW (occurrence: TW)
  Receive Date: 20150323
  Receipt Date: 20150331
  Transmission Date: 20150721
  Serious: Yes (Other)
  Sender: FDA-Public Use
  Company Number: TW-PFIZER INC-2015091280

PATIENT
  Age: 75 Year
  Sex: Male

DRUGS (2)
  1. SUTENT [Suspect]
     Active Substance: SUNITINIB MALATE
     Indication: METASTATIC RENAL CELL CARCINOMA
     Dosage: 50 MG, ONCE DAILY FOR 4 WEEKS ON AND 2 WEEKS OFF
  2. SUTENT [Suspect]
     Active Substance: SUNITINIB MALATE
     Dosage: 50 MG, CYCLIC (ONCE DAILY FOR 2 WEEKS ON AND 1 WEEK OFF

REACTIONS (7)
  - Abdominal pain upper [Unknown]
  - Gastric disorder [Unknown]
  - Nephrolithiasis [Unknown]
  - Palmar-plantar erythrodysaesthesia syndrome [Unknown]
  - Gastritis [Unknown]
  - Thrombocytopenia [Unknown]
  - Vomiting [Unknown]
